FAERS Safety Report 9260740 (Version 1)
Quarter: 2013Q2

REPORT INFORMATION
  Report Type: Spontaneous
  Country: US (occurrence: US)
  Receive Date: 20130429
  Receipt Date: 20130429
  Transmission Date: 20140414
  Serious: No
  Sender: FDA-Public Use
  Company Number: US-009507513-1304USA016320

PATIENT
  Sex: Female

DRUGS (5)
  1. CRIXIVAN [Suspect]
     Dosage: 800 MG, Q8H
     Route: 048
  2. EPIVIR [Concomitant]
     Dosage: UNK
  3. ZERIT [Concomitant]
     Dosage: UNK
  4. IRON (UNSPECIFIED) [Concomitant]
     Dosage: UNK
  5. [THERAPY UNSPECIFIED] [Concomitant]
     Dosage: UNK

REACTIONS (9)
  - Chest pain [Not Recovered/Not Resolved]
  - Gastric dilatation [Not Recovered/Not Resolved]
  - Lipohypertrophy [Not Recovered/Not Resolved]
  - Ingrowing nail [Not Recovered/Not Resolved]
  - Change of bowel habit [Not Recovered/Not Resolved]
  - Product quality issue [Unknown]
  - Nausea [Not Recovered/Not Resolved]
  - Vomiting [Not Recovered/Not Resolved]
  - Anaemia [Not Recovered/Not Resolved]
